FAERS Safety Report 7080541-1 (Version None)
Quarter: 2010Q4

REPORT INFORMATION
  Report Type: 
  Country: None (occurrence: None)
  Receive Date: 20101025
  Receipt Date: 20100816
  Transmission Date: 20110411
  Serious: Yes (Other)
  Sender: FDA-Public Use
  Company Number: ACO_01834_2010

PATIENT
  Sex: Female
  Weight: 47.6277 kg

DRUGS (6)
  1. AMPYRA [Suspect]
     Indication: GAIT DISTURBANCE
     Dosage: (10 MG QD ORAL)
     Route: 048
     Dates: start: 20100813, end: 20100814
  2. SYNTHROID [Concomitant]
  3. FOSAMAX [Concomitant]
  4. NEURONTIN [Concomitant]
  5. ELAVIL [Concomitant]
  6. CELEXA [Concomitant]

REACTIONS (3)
  - CONDITION AGGRAVATED [None]
  - PAIN IN EXTREMITY [None]
  - PARAESTHESIA [None]
